FAERS Safety Report 7551197-6 (Version None)
Quarter: 2011Q2

REPORT INFORMATION
  Report Type: 
  Country: None (occurrence: None)
  Receive Date: 20110616
  Receipt Date: 20110603
  Transmission Date: 20111010
  Serious: No
  Sender: FDA-Public Use
  Company Number: PHHY2011JP45410

PATIENT
  Age: 4 Year
  Sex: Male

DRUGS (3)
  1. VALPROATE SODIUM [Suspect]
     Indication: EPILEPSY
     Dosage: UNK
  2. CARBAMAZEPINE [Suspect]
     Indication: EPILEPSY
     Dosage: UNK
  3. PHENYTOIN [Suspect]
     Indication: EPILEPSY
     Dosage: UNK

REACTIONS (1)
  - GAMMA-GLUTAMYLTRANSFERASE INCREASED [None]
